FAERS Safety Report 13025827 (Version 1)
Quarter: 2016Q4

REPORT INFORMATION
  Report Type: Spontaneous
  Country: GB (occurrence: GB)
  Receive Date: 20161214
  Receipt Date: 20161214
  Transmission Date: 20170207
  Serious: Yes (Hospitalization)
  Sender: FDA-Public Use
  Company Number: GB-AUROBINDO-AUR-APL-2016-14974

PATIENT
  Age: 71 Year
  Sex: Female

DRUGS (2)
  1. PREDNISOLONE. [Suspect]
     Active Substance: PREDNISOLONE
     Indication: PULMONARY SARCOIDOSIS
     Dosage: UNK
     Route: 065
  2. ALENDRONIC ACID 70 [Suspect]
     Active Substance: ALENDRONIC ACID
     Indication: OSTEOPOROSIS
     Dosage: 70 MG, WEEKLY
     Route: 065

REACTIONS (3)
  - Atypical femur fracture [Recovered/Resolved]
  - Pain [Recovered/Resolved]
  - Fall [Recovered/Resolved]
